FAERS Safety Report 5136392-8 (Version None)
Quarter: 2006Q4

REPORT INFORMATION
  Report Type: 
  Country: None (occurrence: None)
  Receive Date: 20061027
  Receipt Date: 20061013
  Transmission Date: 20070319
  Serious: Yes (Hospitalization, Other)
  Sender: FDA-Public Use
  Company Number: PHFR2006GB03089

PATIENT
  Sex: Female

DRUGS (1)
  1. OXCARBAZEPINE [Suspect]

REACTIONS (2)
  - CEREBRAL HAEMORRHAGE [None]
  - HYPONATRAEMIA [None]
